FAERS Safety Report 23326981 (Version 1)
Quarter: 2023Q4

REPORT INFORMATION
  Report Type: Spontaneous
  Country: US (occurrence: None)
  Receive Date: 20231221
  Receipt Date: 20231221
  Transmission Date: 20240109
  Serious: Yes (Hospitalization)
  Sender: FDA-Public Use
  Company Number: None

PATIENT
  Age: 47 Year
  Sex: Female
  Weight: 76.7 kg

DRUGS (3)
  1. CYTARABINE [Suspect]
     Active Substance: CYTARABINE
     Dates: end: 20231130
  2. METHOTREXATE [Suspect]
     Active Substance: METHOTREXATE
     Dates: end: 20231128
  3. PONATINIB HYDROCHLORIDE [Suspect]
     Active Substance: PONATINIB HYDROCHLORIDE
     Dates: end: 20231209

REACTIONS (6)
  - Pyrexia [None]
  - Chills [None]
  - Fatigue [None]
  - Febrile neutropenia [None]
  - Staphylococcal infection [None]
  - Platelet count decreased [None]

NARRATIVE: CASE EVENT DATE: 20231209
